FAERS Safety Report 7362741-6 (Version None)
Quarter: 2011Q1

REPORT INFORMATION
  Report Type: 
  Country: None (occurrence: None)
  Receive Date: 20110321
  Receipt Date: 20110310
  Transmission Date: 20110831
  Serious: No
  Sender: FDA-Public Use
  Company Number: US-BIOGENIDEC-2010BI009991

PATIENT
  Sex: Female

DRUGS (5)
  1. AVONEX [Concomitant]
     Indication: MULTIPLE SCLEROSIS
     Route: 030
     Dates: start: 20020201
  2. AMPYRA [Concomitant]
     Indication: GAIT DISTURBANCE
     Dates: start: 20100601, end: 20100801
  3. VITAMIN B6 [Concomitant]
     Indication: SUPPLEMENTATION THERAPY
     Dates: start: 20100701
  4. VITAMIN B-12 [Concomitant]
     Indication: SUPPLEMENTATION THERAPY
     Dates: start: 20100701
  5. TYSABRI [Suspect]
     Indication: MULTIPLE SCLEROSIS
     Route: 042
     Dates: start: 20090611

REACTIONS (8)
  - WEIGHT DECREASED [None]
  - GASTROINTESTINAL MOTILITY DISORDER [None]
  - BURNING SENSATION [None]
  - NASOPHARYNGITIS [None]
  - BACK PAIN [None]
  - ARTHROPATHY [None]
  - IMPAIRED GASTRIC EMPTYING [None]
  - TRIGGER FINGER [None]
